FAERS Safety Report 9880548 (Version 1)
Quarter: 2014Q1

REPORT INFORMATION
  Report Type: Spontaneous
  Country: US (occurrence: US)
  Receive Date: 20140207
  Receipt Date: 20140207
  Transmission Date: 20141002
  Serious: Yes (Other)
  Sender: FDA-Public Use
  Company Number: US-JNJFOC-20140200759

PATIENT
  Sex: 0

DRUGS (1)
  1. XARELTO [Suspect]
     Indication: ARTERIAL THROMBOSIS
     Route: 048
     Dates: start: 2013, end: 2014

REACTIONS (2)
  - Thrombosis [Unknown]
  - Off label use [Unknown]
